FAERS Safety Report 5328807-7 (Version None)
Quarter: 2007Q2

REPORT INFORMATION
  Report Type: 
  Country: None (occurrence: None)
  Receive Date: 20070518
  Receipt Date: 20070507
  Transmission Date: 20071010
  Serious: Yes (Other)
  Sender: FDA-Public Use
  Company Number: CA-MERCK-0705CAN00069

PATIENT
  Age: 61 Year
  Sex: Male

DRUGS (3)
  1. CRIXIVAN [Suspect]
     Indication: HIV INFECTION
     Route: 048
     Dates: start: 19960101, end: 20020401
  2. LAMIVUDINE [Concomitant]
     Route: 065
     Dates: start: 19960601
  3. ZIDOVUDINE [Concomitant]
     Route: 065

REACTIONS (7)
  - ANAL CANCER [None]
  - BLOOD HIV RNA INCREASED [None]
  - DEPRESSION [None]
  - DRUG HYPERSENSITIVITY [None]
  - NEUROPATHY PERIPHERAL [None]
  - OSTEOARTHRITIS [None]
  - PNEUMONITIS [None]
